FAERS Safety Report 7725860-8 (Version None)
Quarter: 2011Q3

REPORT INFORMATION
  Report Type: 
  Country: None (occurrence: None)
  Receive Date: 20110830
  Receipt Date: 20110816
  Transmission Date: 20111222
  Serious: Yes (Hospitalization, Other)
  Sender: FDA-Public Use
  Company Number: JPI-P--16640

PATIENT
  Age: 54 Year
  Sex: Female

DRUGS (2)
  1. XYREM [Suspect]
     Indication: INSOMNIA
     Dosage: 4.5 GM (2.25 GM, 2 IN 1 D), ORAL; TITRATING DOSE, ORAL; (4 GM FIRST DOSE/4.5 GM SECOND DOSE, ORAL
     Route: 048
     Dates: start: 20070710
  2. XYREM [Suspect]
     Indication: INSOMNIA
     Dosage: 4.5 GM (2.25 GM, 2 IN 1 D), ORAL; TITRATING DOSE, ORAL; (4 GM FIRST DOSE/4.5 GM SECOND DOSE, ORAL
     Route: 048
     Dates: start: 20091110

REACTIONS (1)
  - SPINAL FUSION SURGERY [None]
